FAERS Safety Report 14340733 (Version 1)
Quarter: 2018Q1

REPORT INFORMATION
  Report Type: Spontaneous
  Country: BR (occurrence: BR)
  Receive Date: 20180101
  Receipt Date: 20180101
  Transmission Date: 20180509
  Serious: Yes (Other)
  Sender: FDA-Public Use
  Company Number: BR-BAXTER-2017BAX037217

PATIENT
  Age: 28 Year
  Sex: Female

DRUGS (2)
  1. BUPICAN HEAVY [Suspect]
     Active Substance: BUPIVACAINE HYDROCHLORIDE
     Indication: ANAESTHESIA PROCEDURE
     Route: 037
     Dates: start: 20170730, end: 20170730
  2. BUPICAN HEAVY [Suspect]
     Active Substance: BUPIVACAINE HYDROCHLORIDE
     Dosage: DOSE INCREASED
     Route: 037
     Dates: start: 20170730, end: 20170730

REACTIONS (2)
  - Exposure during pregnancy [Recovered/Resolved]
  - Drug ineffective [Recovered/Resolved]

NARRATIVE: CASE EVENT DATE: 20170730
